FAERS Safety Report 10994980 (Version 1)
Quarter: 2015Q2

REPORT INFORMATION
  Report Type: Spontaneous
  Country: US (occurrence: None)
  Receive Date: 20150403
  Receipt Date: 20150403
  Transmission Date: 20150821
  Serious: Yes (Hospitalization)
  Sender: FDA-Public Use
  Company Number: 2015COR00065

PATIENT
  Age: 12 Year
  Sex: Male

DRUGS (6)
  1. AMOXICILLIN (AMOXICILLIN) [Suspect]
     Active Substance: AMOXICILLIN
     Indication: STREPTOCOCCAL INFECTION
  2. CEFTRIAXONE (CEFTRIAXONE) [Suspect]
     Active Substance: CEFTRIAXONE
     Indication: CELLULITIS
  3. VANCOMYCIN (VANCOMYCIN) [Suspect]
     Active Substance: VANCOMYCIN
     Indication: CELLULITIS
  4. CLINDAMYCIN [Suspect]
     Active Substance: CLINDAMYCIN\CLINDAMYCIN PHOSPHATE
     Indication: CELLULITIS
  5. AMPICILLIN AND SULBACTAM [Suspect]
     Active Substance: AMPICILLIN SODIUM\SULBACTAM SODIUM
  6. STEROID [Concomitant]
     Active Substance: UNSPECIFIED INGREDIENT

REACTIONS (2)
  - Drug-induced liver injury [None]
  - Hepatitis cholestatic [None]
